FAERS Safety Report 11253108 (Version 1)
Quarter: 2015Q3

REPORT INFORMATION
  Report Type: Spontaneous
  Country: US (occurrence: None)
  Receive Date: 20150708
  Receipt Date: 20150708
  Transmission Date: 20151125
  Serious: No
  Sender: FDA-Public Use
  Company Number: None

PATIENT
  Age: 52 Year
  Sex: Male

DRUGS (1)
  1. HUMIRA [Suspect]
     Active Substance: ADALIMUMAB
     Route: 058
     Dates: start: 20150206, end: 20150530

REACTIONS (5)
  - Mood altered [None]
  - Disturbance in attention [None]
  - Dizziness [None]
  - Cognitive disorder [None]
  - Depression [None]

NARRATIVE: CASE EVENT DATE: 20150515
